FAERS Safety Report 9119700 (Version 1)
Quarter: 2013Q1

REPORT INFORMATION
  Report Type: Spontaneous
  Country: US (occurrence: US)
  Receive Date: 20130226
  Receipt Date: 20130226
  Transmission Date: 20140127
  Serious: No
  Sender: FDA-Public Use
  Company Number: US-PFIZER INC-2013067105

PATIENT
  Age: 52 Year
  Sex: Male
  Weight: 77 kg

DRUGS (1)
  1. CHILDRENS ADVIL [Suspect]
     Dosage: UNK
     Route: 048
     Dates: start: 20130220

REACTIONS (2)
  - Paraesthesia oral [Unknown]
  - Cough [Unknown]
